FAERS Safety Report 12258462 (Version 1)
Quarter: 2016Q2

REPORT INFORMATION
  Report Type: Spontaneous
  Country: US (occurrence: US)
  Receive Date: 20160412
  Receipt Date: 20160412
  Transmission Date: 20160815
  Serious: No
  Sender: FDA-Public Use
  Company Number: US-SA-2015SA047295

PATIENT

DRUGS (6)
  1. ADVIL [Suspect]
     Active Substance: IBUPROFEN
     Route: 065
  2. VICKS DAYQUIL [Suspect]
     Active Substance: DEXTROMETHORPHAN HYDROBROMIDE\GUAIFENESIN
     Route: 065
  3. MUCINEX [Suspect]
     Active Substance: GUAIFENESIN
     Route: 065
  4. ALEVE [Suspect]
     Active Substance: NAPROXEN SODIUM
     Route: 065
  5. VICKS NYQUIL [Suspect]
     Active Substance: ACETAMINOPHEN\DEXTROMETHORPHAN HYDROBROMIDE\DOXYLAMINE SUCCINATE
     Route: 065
  6. ALLEGRA [Suspect]
     Active Substance: FEXOFENADINE HYDROCHLORIDE
     Route: 048

REACTIONS (1)
  - Condition aggravated [Unknown]
